FAERS Safety Report 15375870 (Version 5)
Quarter: 2019Q2

REPORT INFORMATION
  Report Type: Spontaneous
  Country: JP (occurrence: JP)
  Receive Date: 20180912
  Receipt Date: 20190616
  Transmission Date: 20190711
  Serious: Yes (Hospitalization, Other)
  Sender: FDA-Public Use
  Company Number: JP-BRISTOL-MYERS SQUIBB COMPANY-BMS-2018-084225

PATIENT
  Age: 64 Year
  Sex: Female
  Weight: 30 kg

DRUGS (2)
  1. OPDIVO [Suspect]
     Active Substance: NIVOLUMAB
     Indication: HEAD AND NECK CANCER METASTATIC
     Dosage: 240 MILLIGRAM, Q2WK
     Route: 041
     Dates: start: 20180329, end: 20180823
  2. LEVOTHYROXINE NA [Concomitant]
     Active Substance: LEVOTHYROXINE SODIUM
     Indication: PRODUCT USED FOR UNKNOWN INDICATION
     Dosage: 50 MICROGRAM
     Route: 065
     Dates: start: 20180614

REACTIONS (3)
  - Blood creatine phosphokinase increased [Recovered/Resolved]
  - Electrocardiogram QT prolonged [Recovered/Resolved]
  - Dermatitis psoriasiform [Recovering/Resolving]

NARRATIVE: CASE EVENT DATE: 20180712
